FAERS Safety Report 12233577 (Version 1)
Quarter: 2016Q2

REPORT INFORMATION
  Report Type: Spontaneous
  Country: US (occurrence: US)
  Receive Date: 20160404
  Receipt Date: 20160404
  Transmission Date: 20160815
  Serious: No
  Sender: FDA-Public Use
  Company Number: US-GLENMARK PHARMACEUTICALS INC, USA.-2015GMK014393

PATIENT

DRUGS (1)
  1. CICLOPIROX. [Suspect]
     Active Substance: CICLOPIROX
     Indication: ONYCHOMYCOSIS
     Dosage: ONE APPLICATION, OD
     Route: 061

REACTIONS (3)
  - Nail discolouration [Unknown]
  - Nail growth abnormal [Unknown]
  - Drug ineffective for unapproved indication [Unknown]
